FAERS Safety Report 20202533 (Version 2)
Quarter: 2021Q4

REPORT INFORMATION
  Report Type: Spontaneous
  Country: FR (occurrence: FR)
  Receive Date: 20211218
  Receipt Date: 20211229
  Transmission Date: 20220304
  Serious: Yes (Hospitalization)
  Sender: FDA-Public Use
  Company Number: None

PATIENT
  Age: 72 Year
  Sex: Female

DRUGS (7)
  1. IMODIUM [Suspect]
     Active Substance: LOPERAMIDE HYDROCHLORIDE
     Indication: Diarrhoea
     Route: 048
     Dates: start: 20211028, end: 20211028
  2. FLUOXETINE HYDROCHLORIDE [Suspect]
     Active Substance: FLUOXETINE HYDROCHLORIDE
     Indication: Depression
     Dosage: 20 MG, 1/DAY SINCE 2003
     Route: 048
     Dates: start: 2004
  3. INDAPAMIDE [Suspect]
     Active Substance: INDAPAMIDE
     Indication: Hypertension
     Dosage: 1 IN THE MORNING SINCE 2013.
     Route: 048
     Dates: start: 2013
  4. ROSUVASTATIN CALCIUM [Suspect]
     Active Substance: ROSUVASTATIN CALCIUM
     Indication: Dyslipidaemia
     Dosage: 5 MG , 1 IN THE EVENING SINCE 2001
     Route: 048
     Dates: start: 2001
  5. INNOVAIR [Concomitant]
     Active Substance: BECLOMETHASONE DIPROPIONATE\FORMOTEROL
     Dosage: 100/6G, 1 MORNING AND 1 EVENING.
     Route: 065
  6. DOXYCYCLINE [Concomitant]
     Active Substance: DOXYCYCLINE
     Route: 065
  7. AZELAIC ACID [Concomitant]
     Active Substance: AZELAIC ACID
     Route: 065

REACTIONS (1)
  - Cutaneous vasculitis [Not Recovered/Not Resolved]

NARRATIVE: CASE EVENT DATE: 20211031
